FAERS Safety Report 5390496-3 (Version None)
Quarter: 2007Q3

REPORT INFORMATION
  Report Type: 
  Country: None (occurrence: None)
  Receive Date: 20070718
  Receipt Date: 20070510
  Transmission Date: 20080115
  Serious: No
  Sender: FDA-Public Use
  Company Number: US-KINGPHARMUSA00001-K200700573

PATIENT

DRUGS (3)
  1. LEVOXYL [Suspect]
     Indication: HYPOTHYROIDISM
     Dosage: 62.5 MCG, QD
     Route: 048
     Dates: start: 20020101
  2. ESTRACE [Concomitant]
     Dosage: UNK, QD
     Route: 048
     Dates: end: 20070401
  3. IBUPROFEN [Concomitant]
     Dosage: UNK, PRN
     Route: 048

REACTIONS (1)
  - ALOPECIA [None]
